FAERS Safety Report 5275027-0 (Version None)
Quarter: 2007Q1

REPORT INFORMATION
  Report Type: 
  Country: None (occurrence: None)
  Receive Date: 20070325
  Receipt Date: 20070312
  Transmission Date: 20070707
  Serious: Yes (Life-Threatening, Other)
  Sender: FDA-Public Use
  Company Number: US-JNJFOC-20070202768

PATIENT
  Sex: Female
  Weight: 74.84 kg

DRUGS (9)
  1. REMICADE [Suspect]
     Dosage: DOSE: 4 VIALS
     Route: 042
  2. REMICADE [Suspect]
     Dosage: DOSE: 4 VIALS
     Route: 042
  3. REMICADE [Suspect]
     Indication: CROHN'S DISEASE
     Dosage: DOSE: 4 VIALS
     Route: 042
  4. AZATIOPRINE [Concomitant]
     Indication: CROHN'S DISEASE
     Route: 048
  5. LEVAQUIN [Concomitant]
     Indication: CROHN'S DISEASE
     Route: 048
  6. ATENOLOL [Concomitant]
     Indication: CROHN'S DISEASE
     Route: 048
  7. LISINOPRIL [Concomitant]
     Indication: CROHN'S DISEASE
     Route: 048
  8. VITAMIN B-12 [Concomitant]
     Route: 030
  9. VITAMIN B-12 [Concomitant]
     Indication: CROHN'S DISEASE
     Route: 030

REACTIONS (1)
  - LUNG CANCER METASTATIC [None]
